FAERS Safety Report 6316283-7 (Version None)
Quarter: 2009Q3

REPORT INFORMATION
  Report Type: 
  Country: None (occurrence: None)
  Receive Date: 20090820
  Receipt Date: 20090811
  Transmission Date: 20100115
  Serious: Yes (Other)
  Sender: FDA-Public Use
  Company Number: US-JNJFOC-20060906238

PATIENT
  Sex: Female
  Weight: 106.14 kg

DRUGS (2)
  1. RISPERDAL [Suspect]
     Indication: DEPRESSION
  2. SEROQUEL [Concomitant]
     Indication: DEPRESSION
     Route: 065

REACTIONS (8)
  - AKATHISIA [None]
  - ANORGASMIA [None]
  - HYPERPROLACTINAEMIA [None]
  - INSOMNIA [None]
  - LIBIDO DECREASED [None]
  - NERVOUSNESS [None]
  - PSYCHOSEXUAL DISORDER [None]
  - TYPE 2 DIABETES MELLITUS [None]
